FAERS Safety Report 7933249-1 (Version None)
Quarter: 2011Q4

REPORT INFORMATION
  Report Type: 
  Country: None (occurrence: None)
  Receive Date: 20111122
  Receipt Date: 20111110
  Transmission Date: 20120403
  Serious: No
  Sender: FDA-Public Use
  Company Number: US-B.I. PHARMACEUTICALS,INC./RIDGEFIELD-2011-BP-26048BP

PATIENT
  Sex: Male

DRUGS (17)
  1. DOXAZOSIN MESYLATE [Concomitant]
     Indication: BENIGN PROSTATIC HYPERPLASIA
  2. CREON [Concomitant]
     Indication: DIARRHOEA
     Dosage: 12000 U
     Route: 048
  3. GLUCOPHAGE [Concomitant]
     Indication: DIABETES MELLITUS
     Route: 048
  4. REQUIP [Concomitant]
     Indication: RESTLESS LEGS SYNDROME
     Route: 048
  5. ALLOPURINOL [Concomitant]
     Indication: GOUT
     Route: 048
  6. INDOMETHACIN [Concomitant]
     Indication: GOUT
     Route: 048
  7. COLCHICINE [Concomitant]
     Indication: GOUT
     Route: 048
  8. AMBIEN [Concomitant]
     Indication: INSOMNIA
     Route: 048
  9. PRADAXA [Suspect]
     Indication: ATRIAL FIBRILLATION
     Dosage: 300 MG
     Route: 048
     Dates: start: 20110701
  10. TOPROL-XL [Concomitant]
     Indication: HYPERTENSION
     Route: 048
  11. NOVOLOG PEN [Concomitant]
     Indication: DIABETES MELLITUS
  12. SANDOSTATIN [Concomitant]
     Indication: NEOPLASM MALIGNANT
     Dosage: 30 MG
     Route: 048
  13. LYRICA [Concomitant]
     Indication: RESTLESS LEGS SYNDROME
     Route: 048
  14. LISINOPRIL [Concomitant]
     Indication: HYPERTENSION
     Dosage: 40 MG
     Route: 048
  15. CRESTOR [Concomitant]
     Indication: BLOOD CHOLESTEROL INCREASED
     Dosage: 20 MG
  16. LUNESTA [Concomitant]
     Indication: INSOMNIA
     Route: 048
  17. ASPIRIN [Concomitant]
     Indication: PROPHYLAXIS
     Route: 048

REACTIONS (3)
  - PHARYNGEAL OEDEMA [None]
  - HICCUPS [None]
  - THROAT IRRITATION [None]
